FAERS Safety Report 14983124 (Version 2)
Quarter: 2019Q1

REPORT INFORMATION
  Report Type: Report from Study
  Country: DE (occurrence: DE)
  Receive Date: 20180607
  Receipt Date: 20190326
  Transmission Date: 20190417
  Serious: Yes (Death, Hospitalization, Other)
  Sender: FDA-Public Use
  Company Number: DE-ACCORD-067767

PATIENT
  Age: 68 Year
  Sex: Female
  Weight: 86.6 kg

DRUGS (7)
  1. TOPOTECAN [Suspect]
     Active Substance: TOPOTECAN HYDROCHLORIDE
     Indication: OVARIAN CANCER
     Dates: start: 201309
  2. DOXORUBICIN [Suspect]
     Active Substance: DOXORUBICIN
     Indication: OVARIAN CANCER
     Dosage: ALSO RECEIVED ON JUN-2013, 2CYCLES.
     Dates: start: 201303, end: 201306
  3. CAELYX [Suspect]
     Active Substance: DOXORUBICIN HYDROCHLORIDE
     Indication: OVARIAN CANCER
     Dosage: 2 CYCLES
     Dates: start: 201307
  4. CARBOPLATIN. [Concomitant]
     Active Substance: CARBOPLATIN
     Indication: OVARIAN CANCER
     Dosage: 6 CYCLES,ALSO RECIEVED 1990 MG
     Route: 042
     Dates: start: 20120912, end: 20121002
  5. CISPLATIN. [Suspect]
     Active Substance: CISPLATIN
     Indication: OVARIAN CANCER
     Dosage: 3 CYCLES
     Dates: start: 201303, end: 201306
  6. GEMZAR [Concomitant]
     Active Substance: GEMCITABINE HYDROCHLORIDE
     Indication: OVARIAN CANCER
     Dosage: ALSO TAKEN 1990 MG ON 02-OCT-2012?.
     Dates: start: 20120912, end: 20121002
  7. AVASTIN [Suspect]
     Active Substance: BEVACIZUMAB
     Indication: OVARIAN CANCER
     Dosage: 1300 MG ON 12-SEP-2012,AUG-2012 TO DEC-2012,6 CYCLES
     Route: 042
     Dates: start: 201208, end: 201212

REACTIONS (6)
  - Urinary tract obstruction [Recovered/Resolved]
  - Pleural effusion [Fatal]
  - Respiratory failure [Fatal]
  - Ileus [Fatal]
  - Ascites [Unknown]
  - Drug intolerance [Recovered/Resolved]

NARRATIVE: CASE EVENT DATE: 201208
